FAERS Safety Report 5011252-1 (Version None)
Quarter: 2006Q2

REPORT INFORMATION
  Report Type: 
  Country: None (occurrence: None)
  Receive Date: 20060523
  Receipt Date: 20060523
  Transmission Date: 20061013
  Serious: Yes (Life-Threatening)
  Sender: FDA-Public Use
  Company Number: None

PATIENT

DRUGS (2)
  1. HEPARIN [Suspect]
     Indication: ATRIAL FIBRILLATION
  2. ENOXAPARIN SODIUM [Suspect]
     Indication: ATRIAL FIBRILLATION
     Dates: start: 20060111, end: 20060120

REACTIONS (3)
  - ATRIAL FIBRILLATION [None]
  - HEPARIN-INDUCED THROMBOCYTOPENIA [None]
  - ILL-DEFINED DISORDER [None]
